FAERS Safety Report 15224988 (Version 2)
Quarter: 2018Q3

REPORT INFORMATION
  Report Type: Spontaneous
  Country: BR (occurrence: BR)
  Receive Date: 20180801
  Receipt Date: 20180817
  Transmission Date: 20181010
  Serious: Yes (Hospitalization, Other)
  Sender: FDA-Public Use
  Company Number: BR-ALEXION-A201809531

PATIENT
  Sex: Female
  Weight: 61 kg

DRUGS (4)
  1. SOLIRIS [Suspect]
     Active Substance: ECULIZUMAB
     Dosage: 1200 MG EVERY 14 DAYS
     Route: 042
     Dates: start: 20140730
  2. SOLIRIS [Suspect]
     Active Substance: ECULIZUMAB
     Indication: ATYPICAL HAEMOLYTIC URAEMIC SYNDROME
     Dosage: 900 MG EVERY 7 DAYS
     Route: 042
     Dates: start: 20140701, end: 20140724
  3. BICARBONATE [Concomitant]
     Indication: PRODUCT USED FOR UNKNOWN INDICATION
     Dosage: UNK UNK, BID, 1 SPOON DISSOLVED IN WATER
     Route: 048
  4. FOLIC ACID. [Concomitant]
     Active Substance: FOLIC ACID
     Indication: PRODUCT USED FOR UNKNOWN INDICATION
     Dosage: UNK, UNK, BID, 1 SPOON DISSOLVED IN WATER
     Route: 065

REACTIONS (11)
  - Vomiting [Unknown]
  - Dysgeusia [Recovering/Resolving]
  - Renal impairment [Recovered/Resolved]
  - Blood creatinine increased [Recovering/Resolving]
  - Urine output decreased [Unknown]
  - Transplant rejection [Not Recovered/Not Resolved]
  - Blood urea increased [Unknown]
  - Blood potassium decreased [Unknown]
  - Weight decreased [Unknown]
  - Hypoaesthesia [Unknown]
  - Blood test abnormal [Unknown]
